FAERS Safety Report 6212981-4 (Version None)
Quarter: 2009Q2

REPORT INFORMATION
  Report Type: 
  Country: None (occurrence: None)
  Receive Date: 20090602
  Receipt Date: 20090602
  Transmission Date: 20091009
  Serious: Yes (Hospitalization)
  Sender: FDA-Public Use
  Company Number: None

PATIENT
  Sex: Male
  Weight: 80 kg

DRUGS (2)
  1. CARBOPLATIN [Suspect]
     Dosage: 440 MG
  2. TAXOL [Suspect]
     Dosage: 300 MG

REACTIONS (2)
  - GASTRITIS [None]
  - PNEUMONIA ASPIRATION [None]
